FAERS Safety Report 23551226 (Version 2)
Quarter: 2024Q2

REPORT INFORMATION
  Report Type: Spontaneous
  Country: US (occurrence: US)
  Receive Date: 20240222
  Receipt Date: 20240409
  Transmission Date: 20240716
  Serious: No
  Sender: FDA-Public Use
  Company Number: US-SANDOZ-SDZ2024US016937

PATIENT
  Sex: Male
  Weight: 178.8 kg

DRUGS (1)
  1. CEFTRIAXONE [Suspect]
     Active Substance: CEFTRIAXONE\CEFTRIAXONE SODIUM
     Indication: Osteoarthritis
     Dosage: 500 MG
     Route: 065

REACTIONS (1)
  - Product administered at inappropriate site [Unknown]
